FAERS Safety Report 4402640-2 (Version None)
Quarter: 2004Q3

REPORT INFORMATION
  Report Type: 
  Country: None (occurrence: None)
  Receive Date: 20040721
  Receipt Date: 20040604
  Transmission Date: 20050211
  Serious: Yes (Other)
  Sender: FDA-Public Use
  Company Number: JP-MERCK-0406USA00851

PATIENT
  Age: 67 Year
  Sex: Male

DRUGS (5)
  1. BROACT [Concomitant]
     Route: 042
     Dates: start: 20040524, end: 20040527
  2. RIVOTRIL [Concomitant]
     Route: 048
     Dates: start: 20040526
  3. DIAZEPAM [Concomitant]
     Route: 042
     Dates: start: 20040524, end: 20040527
  4. DIAZEPAM [Concomitant]
     Route: 048
     Dates: start: 20040602
  5. PEPCID [Suspect]
     Route: 048
     Dates: start: 20040523, end: 20040529

REACTIONS (7)
  - BLOOD PRESSURE DECREASED [None]
  - BLOOD URINE [None]
  - CONDITION AGGRAVATED [None]
  - MULTI-ORGAN FAILURE [None]
  - PNEUMONIA [None]
  - RENAL FAILURE ACUTE [None]
  - RHABDOMYOLYSIS [None]
